FAERS Safety Report 5368593-8 (Version None)
Quarter: 2007Q2

REPORT INFORMATION
  Report Type: 
  Country: None (occurrence: None)
  Receive Date: 20070625
  Receipt Date: 20070621
  Transmission Date: 20071010
  Serious: Yes (Other)
  Sender: FDA-Public Use
  Company Number: CA-JNJFOC-20070605319

PATIENT
  Sex: Male

DRUGS (7)
  1. TMC114 [Suspect]
     Route: 048
  2. TMC114 [Suspect]
     Indication: HIV INFECTION
     Route: 048
  3. RITONAVIR [Suspect]
     Route: 048
  4. RITONAVIR [Suspect]
     Indication: HIV INFECTION
     Route: 048
  5. ENFUVIRTIDE [Concomitant]
     Indication: HIV INFECTION
     Route: 058
  6. TRIZIVIR [Concomitant]
     Indication: HIV INFECTION
     Route: 048
  7. TENOFOVIR [Concomitant]
     Indication: HIV INFECTION
     Route: 048

REACTIONS (1)
  - PANCREATITIS [None]
